FAERS Safety Report 5398170-4 (Version None)
Quarter: 2007Q3

REPORT INFORMATION
  Report Type: 
  Country: None (occurrence: None)
  Receive Date: 20070726
  Receipt Date: 20070717
  Transmission Date: 20080115
  Serious: Yes (Other)
  Sender: FDA-Public Use
  Company Number: JP-PFIZER INC-2007051929

PATIENT
  Age: 68 Year
  Sex: Male
  Weight: 55 kg

DRUGS (13)
  1. ZYVOX [Suspect]
     Indication: STAPHYLOCOCCAL INFECTION
     Route: 042
     Dates: start: 20070608, end: 20070622
  2. ZYVOX [Suspect]
     Route: 048
  3. DALACIN S [Suspect]
     Indication: STAPHYLOCOCCAL INFECTION
     Route: 042
     Dates: start: 20070531, end: 20070613
  4. MINOCYCLINE HCL [Suspect]
     Indication: STAPHYLOCOCCAL INFECTION
     Route: 042
     Dates: start: 20070614, end: 20070628
  5. TETRAMIDE [Concomitant]
     Route: 048
  6. DEPAS [Concomitant]
     Route: 048
  7. ACTOS [Concomitant]
     Route: 048
  8. FAMOTIDINE [Concomitant]
     Route: 048
  9. ROPION [Concomitant]
     Route: 042
  10. SELBEX [Concomitant]
     Route: 048
  11. BIOFERMIN R [Concomitant]
     Route: 048
  12. METHYCOBAL [Concomitant]
     Route: 048
  13. LAC B [Concomitant]
     Route: 048

REACTIONS (6)
  - AGEUSIA [None]
  - FEELING ABNORMAL [None]
  - HEADACHE [None]
  - NAUSEA [None]
  - PALPITATIONS [None]
  - PANCYTOPENIA [None]
